FAERS Safety Report 8951129 (Version 1)
Quarter: 2012Q4

REPORT INFORMATION
  Report Type: 
  Country: US (occurrence: US)
  Receive Date: 20121207
  Receipt Date: 20121207
  Transmission Date: 20130627
  Serious: Yes (Other)
  Sender: FDA-Public Use
  Company Number: PHEH2012US023721

PATIENT
  Sex: Female

DRUGS (5)
  1. DIOVAN [Suspect]
  2. EFFIENT [Concomitant]
  3. SIMVASTATIN [Concomitant]
  4. PANTOPRAZOLE [Concomitant]
  5. METOPROLOL [Concomitant]

REACTIONS (1)
  - Myocardial infarction [Unknown]
